FAERS Safety Report 7151410-3 (Version None)
Quarter: 2010Q4

REPORT INFORMATION
  Report Type: 
  Country: None (occurrence: None)
  Receive Date: 20101210
  Receipt Date: 20101202
  Transmission Date: 20110411
  Serious: Yes (Disabling)
  Sender: FDA-Public Use
  Company Number: US-MERCK-0903USA01376

PATIENT
  Age: 52 Year
  Sex: Female
  Weight: 71 kg

DRUGS (7)
  1. FOSAMAX [Suspect]
     Indication: OSTEOPENIA
     Route: 048
     Dates: start: 20030101
  2. FOSAMAX [Suspect]
     Route: 048
     Dates: start: 19960601, end: 20070306
  3. FOSAMAX [Suspect]
     Route: 048
     Dates: start: 20021105
  4. FOSAMAX [Suspect]
     Indication: OSTEOPOROSIS
     Route: 048
     Dates: start: 20030101
  5. FOSAMAX [Suspect]
     Route: 048
     Dates: start: 19960601, end: 20070306
  6. FOSAMAX [Suspect]
     Route: 048
     Dates: start: 20021105
  7. ALENDRONATE SODIUM [Suspect]
     Route: 048
     Dates: start: 20090515, end: 20100118

REACTIONS (43)
  - ABSCESS [None]
  - ADVERSE EVENT [None]
  - ARTHROPATHY [None]
  - ATTENTION DEFICIT/HYPERACTIVITY DISORDER [None]
  - BACK DISORDER [None]
  - BACK PAIN [None]
  - BIPOLAR DISORDER [None]
  - BLOOD CHOLESTEROL INCREASED [None]
  - BUNION [None]
  - CANDIDIASIS [None]
  - CARPAL TUNNEL SYNDROME [None]
  - CHEST INJURY [None]
  - CHEST PAIN [None]
  - CONTUSION [None]
  - CYST [None]
  - DRUG INEFFECTIVE [None]
  - FALL [None]
  - FOOT DEFORMITY [None]
  - FOOT FRACTURE [None]
  - GINGIVAL RECESSION [None]
  - GINGIVITIS [None]
  - HAEMANGIOMA [None]
  - HERPES ZOSTER [None]
  - HYPERLIPIDAEMIA [None]
  - HYPOAESTHESIA [None]
  - JOINT DISLOCATION [None]
  - LIVER DISORDER [None]
  - MUSCULOSKELETAL DISCOMFORT [None]
  - ORAL DISORDER [None]
  - ORAL INFECTION [None]
  - ORAL TORUS [None]
  - OSTEONECROSIS OF JAW [None]
  - PAIN IN EXTREMITY [None]
  - PALATAL DISORDER [None]
  - PERIODONTITIS [None]
  - PLEURISY [None]
  - ROAD TRAFFIC ACCIDENT [None]
  - STOMATITIS [None]
  - THERMAL BURN [None]
  - TONGUE DISCOLOURATION [None]
  - TRAUMATIC ULCER [None]
  - URINARY TRACT INFECTION [None]
  - YELLOW NAIL SYNDROME [None]
